FAERS Safety Report 9235554 (Version 1)
Quarter: 2013Q1

REPORT INFORMATION
  Report Type: Spontaneous
  Country: US (occurrence: None)
  Receive Date: 20121031
  Receipt Date: 20121031
  Transmission Date: 20140127
  Serious: Yes (Other)
  Sender: FDA-Public Use
  Company Number: PHEH2012US014935

PATIENT
  Sex: Female
  Weight: 55.79 kg

DRUGS (5)
  1. GILENYA [Suspect]
     Route: 048
  2. NITROFURANTOIN (NITROFURANTOIN0 CAPSULES [Concomitant]
  3. MULTIVITAMIN (VITAMINS NOS) TABLET [Concomitant]
  4. VITAMIN D (ERGOCALCIFEROL) CAPSULE [Concomitant]
  5. ANTIOXIDANT CAPSULE [Concomitant]

REACTIONS (1)
  - Urinary tract infection [None]
